FAERS Safety Report 5199105-X (Version None)
Quarter: 2007Q1

REPORT INFORMATION
  Report Type: 
  Country: None (occurrence: None)
  Receive Date: 20070104
  Receipt Date: 20061023
  Transmission Date: 20070707
  Serious: Yes (Other)
  Sender: FDA-Public Use
  Company Number: US-SHR-US-2006-036845

PATIENT
  Age: 45 Year
  Sex: Female

DRUGS (3)
  1. BETASERON [Suspect]
     Indication: SECONDARY PROGRESSIVE MULTIPLE SCLEROSIS
     Dosage: UNK MIU, EVERY 2D
     Route: 058
     Dates: start: 20040325, end: 20050310
  2. BETASERON [Suspect]
     Dosage: 2 MIU, EVERY 2D
     Route: 058
     Dates: start: 20050402, end: 20060616
  3. BETASERON [Suspect]
     Dosage: 4 MIU, EVERY 2D
     Route: 058
     Dates: start: 20060921

REACTIONS (4)
  - CONVULSION [None]
  - FALL [None]
  - LOSS OF CONSCIOUSNESS [None]
  - UROSEPSIS [None]
